FAERS Safety Report 8499873-5 (Version None)
Quarter: 2012Q3

REPORT INFORMATION
  Report Type: 
  Country: None (occurrence: None)
  Receive Date: 20120710
  Receipt Date: 20120629
  Transmission Date: 20120928
  Serious: Yes (Hospitalization, Other)
  Sender: FDA-Public Use
  Company Number: JP-VERTEX PHARMACEUTICALS INC.-AE-2012-005901

PATIENT
  Age: 64 Year
  Sex: Female

DRUGS (11)
  1. URSO 250 [Concomitant]
     Route: 048
     Dates: end: 20120330
  2. PEGINTERFERON ALFA-2B [Concomitant]
     Route: 058
     Dates: start: 20120515
  3. NEO-MINOPHAGEN C [Concomitant]
  4. RIBAVIRIN [Concomitant]
     Route: 048
     Dates: start: 20120418, end: 20120421
  5. TELAVIC (TELAPREVIR) [Suspect]
     Route: 048
     Dates: start: 20120418, end: 20120421
  6. PEGINTERFERON ALFA-2B [Concomitant]
     Indication: HEPATITIS C
     Route: 058
     Dates: start: 20120306, end: 20120421
  7. RIBAVIRIN [Concomitant]
     Route: 048
     Dates: start: 20120326, end: 20120417
  8. TELAVIC (TELAPREVIR) [Suspect]
     Indication: HEPATITIS C
     Route: 048
     Dates: start: 20120306, end: 20120417
  9. RIBAVIRIN [Concomitant]
     Indication: HEPATITIS C
     Route: 048
     Dates: start: 20120306, end: 20120325
  10. RIBAVIRIN [Concomitant]
     Route: 048
     Dates: start: 20120515
  11. URSO 250 [Concomitant]
     Route: 048
     Dates: start: 20120331

REACTIONS (2)
  - DECREASED APPETITE [None]
  - ANAEMIA [None]
